FAERS Safety Report 8976153 (Version 1)
Quarter: 2012Q4

REPORT INFORMATION
  Report Type: Report from Study
  Country: CA (occurrence: CA)
  Receive Date: 20121220
  Receipt Date: 20121220
  Transmission Date: 20130627
  Serious: Yes (Other)
  Sender: FDA-Public Use
  Company Number: CA-ROCHE-1165725

PATIENT
  Age: 63 Year
  Sex: Male

DRUGS (1)
  1. OMALIZUMAB [Suspect]
     Indication: ASTHMA
     Route: 065
     Dates: start: 20051005

REACTIONS (12)
  - Pneumonia [Unknown]
  - Asthma [Unknown]
  - Ear discomfort [Unknown]
  - Influenza [Unknown]
  - Sinus congestion [Unknown]
  - Seasonal allergy [Unknown]
  - Hyposmia [Unknown]
  - Wheezing [Unknown]
  - Fatigue [Unknown]
  - Weight increased [Unknown]
  - Cough [Unknown]
  - Hypersensitivity [Unknown]
